FAERS Safety Report 8032363-2 (Version None)
Quarter: 2012Q1

REPORT INFORMATION
  Report Type: 
  Country: None (occurrence: None)
  Receive Date: 20120110
  Receipt Date: 20120102
  Transmission Date: 20120608
  Serious: Yes (Hospitalization, Other)
  Sender: FDA-Public Use
  Company Number: TR-PAR PHARMACEUTICAL, INC-2012SCPR003897

PATIENT

DRUGS (2)
  1. RISPERIDONE [Suspect]
     Indication: MENTAL RETARDATION
     Dosage: 2X2 MG/DAY
     Route: 048
  2. RISPERIDONE [Suspect]
     Indication: MENTAL DISORDER

REACTIONS (3)
  - INCORRECT DOSE ADMINISTERED [None]
  - NEUROLEPTIC MALIGNANT SYNDROME [None]
  - RESPIRATORY FAILURE [None]
